FAERS Safety Report 4540945-5 (Version None)
Quarter: 2004Q4

REPORT INFORMATION
  Report Type: 
  Country: None (occurrence: None)
  Receive Date: 20041229
  Receipt Date: 20041220
  Transmission Date: 20050328
  Serious: Yes (Other)
  Sender: FDA-Public Use
  Company Number: FR-GLAXOSMITHKLINE-B0362711A

PATIENT
  Age: 23 Year
  Sex: Male

DRUGS (2)
  1. DEROXAT [Suspect]
     Route: 048
     Dates: start: 20041101, end: 20041220
  2. PROZAC [Suspect]
     Route: 048
     Dates: start: 20041216

REACTIONS (2)
  - DRUG INEFFECTIVE [None]
  - INTENTIONAL OVERDOSE [None]
